FAERS Safety Report 14805768 (Version 3)
Quarter: 2018Q4

REPORT INFORMATION
  Report Type: Spontaneous
  Country: IT (occurrence: IT)
  Receive Date: 20180425
  Receipt Date: 20181130
  Transmission Date: 20190204
  Serious: Yes (Hospitalization, Other)
  Sender: FDA-Public Use
  Company Number: IT-SA-2018SA115605

PATIENT
  Age: 52 Year
  Sex: Male

DRUGS (5)
  1. CISPLATIN. [Suspect]
     Active Substance: CISPLATIN
     Indication: CHEMOTHERAPY
     Dosage: 1 UNK, QCY
     Dates: start: 201509
  2. DOCETAXEL. [Suspect]
     Active Substance: DOCETAXEL
     Dosage: WEEKLY ADMINISTRATIONS IN CYCLES
     Dates: start: 201509
  3. DOCETAXEL. [Suspect]
     Active Substance: DOCETAXEL
     Indication: METASTASES TO LYMPH NODES
     Dosage: UNK UNK, QW
  4. FLUOROURACIL. [Concomitant]
     Active Substance: FLUOROURACIL
     Indication: PENILE CANCER
     Dosage: UNK
     Dates: start: 201506
  5. CAPECITABINE. [Concomitant]
     Active Substance: CAPECITABINE
     Indication: PENILE SQUAMOUS CELL CARCINOMA

REACTIONS (12)
  - Blood creatinine increased [Recovering/Resolving]
  - Neurotoxicity [Unknown]
  - Haemoglobinaemia [Recovered/Resolved]
  - Acute kidney injury [Recovering/Resolving]
  - Haemolytic anaemia [Recovering/Resolving]
  - Condition aggravated [Recovering/Resolving]
  - Anuria [Not Recovered/Not Resolved]
  - Blood lactate dehydrogenase increased [Recovered/Resolved]
  - Blood bilirubin increased [Recovering/Resolving]
  - Off label use [Unknown]
  - Atypical haemolytic uraemic syndrome [Recovering/Resolving]
  - Thrombocytopenia [Recovered/Resolved]
